FAERS Safety Report 8556628-0 (Version None)
Quarter: 2012Q2

REPORT INFORMATION
  Report Type: 
  Country: None (occurrence: None)
  Receive Date: 20120418
  Receipt Date: 20080718
  Transmission Date: 20120825
  Serious: Yes (Life-Threatening)
  Sender: FDA-Public Use
  Company Number: PHEH2008US06526

PATIENT

DRUGS (1)
  1. ELIDEL [Suspect]

REACTIONS (1)
  - LYMPHOMA [None]
